FAERS Safety Report 4744335-1 (Version None)
Quarter: 2005Q3

REPORT INFORMATION
  Report Type: 
  Country: None (occurrence: None)
  Receive Date: 20050812
  Receipt Date: 20050506
  Transmission Date: 20060218
  Serious: Yes (Hospitalization)
  Sender: FDA-Public Use
  Company Number: US-MERCK-0505USA00870

PATIENT
  Age: 59 Year
  Sex: Male
  Weight: 102 kg

DRUGS (10)
  1. COZAAR [Concomitant]
     Route: 065
  2. THEO-DUR [Concomitant]
     Route: 065
  3. LOPRESSOR [Concomitant]
     Route: 065
     Dates: start: 20000101
  4. COUMADIN [Concomitant]
     Route: 065
     Dates: start: 20000101
  5. MINIPRESS [Concomitant]
     Route: 065
  6. NORVASC [Concomitant]
     Route: 065
  7. VIOXX [Suspect]
     Indication: OSTEOARTHRITIS
     Route: 048
     Dates: start: 20010101, end: 20040101
  8. INSULIN [Concomitant]
     Route: 065
  9. LASIX [Concomitant]
     Route: 065
     Dates: start: 19960101
  10. COREG [Concomitant]
     Route: 065

REACTIONS (3)
  - CEREBROVASCULAR ACCIDENT [None]
  - LOSS OF CONSCIOUSNESS [None]
  - MYOCARDIAL INFARCTION [None]
